FAERS Safety Report 10055766 (Version 1)
Quarter: 2014Q2

REPORT INFORMATION
  Report Type: Spontaneous
  Country: JP (occurrence: None)
  Receive Date: 20140401
  Receipt Date: 20140401
  Transmission Date: 20141212
  Serious: Yes (Death, Hospitalization)
  Sender: FDA-Public Use
  Company Number: JP-015081

PATIENT
  Age: 79 Year
  Sex: Male

DRUGS (9)
  1. MINIRIN MELT [Suspect]
     Indication: DIABETES INSIPIDUS
     Dosage: (120 UG ORAL)
     Route: 048
     Dates: start: 20130629, end: 20130702
  2. BARACLUDE [Concomitant]
  3. SEROQUEL [Concomitant]
  4. CANCIDAS [Concomitant]
  5. TARGOCID [Concomitant]
  6. TIENAM [Concomitant]
  7. MYCOSYST [Concomitant]
  8. CALONAL [Concomitant]
  9. VIDAZA [Concomitant]

REACTIONS (4)
  - Myelodysplastic syndrome [None]
  - Condition aggravated [None]
  - Hyponatraemia [None]
  - Urine output decreased [None]
